FAERS Safety Report 19610110 (Version 2)
Quarter: 2021Q3

REPORT INFORMATION
  Report Type: Report from Study
  Country: US (occurrence: US)
  Receive Date: 20210726
  Receipt Date: 20210804
  Transmission Date: 20211014
  Serious: Yes (Other)
  Sender: FDA-Public Use
  Company Number: US-GLAXOSMITHKLINE-US2021157989

PATIENT
  Sex: Female

DRUGS (3)
  1. NIRAPARIB [Suspect]
     Active Substance: NIRAPARIB
     Indication: OVARIAN CANCER
     Dosage: 200 MG, QD
     Route: 048
     Dates: start: 20210715
  2. VINEGAR [Suspect]
     Active Substance: ACETIC ACID
     Indication: SENSITIVE SKIN
     Dosage: UNK
     Route: 065
  3. APPLE CIDER VINEGAR [Suspect]
     Active Substance: APPLE CIDER VINEGAR
     Indication: SENSITIVE SKIN
     Dosage: UNK

REACTIONS (10)
  - Taste disorder [Not Recovered/Not Resolved]
  - Memory impairment [Unknown]
  - Skin discolouration [Not Recovered/Not Resolved]
  - Photosensitivity reaction [Unknown]
  - Sleep disorder [Not Recovered/Not Resolved]
  - Neuropathy peripheral [Not Recovered/Not Resolved]
  - Headache [Not Recovered/Not Resolved]
  - Sensitive skin [Not Recovered/Not Resolved]
  - Condition aggravated [Unknown]
  - Constipation [Not Recovered/Not Resolved]
